FAERS Safety Report 19634744 (Version 1)
Quarter: 2021Q3

REPORT INFORMATION
  Report Type: Report from Study
  Country: CA (occurrence: CA)
  Receive Date: 20210730
  Receipt Date: 20210730
  Transmission Date: 20211014
  Serious: Yes (Other)
  Sender: FDA-Public Use
  Company Number: CA-SA-2021SA248033

PATIENT
  Age: 55 Year
  Sex: Male

DRUGS (3)
  1. COPAXONE [Concomitant]
     Active Substance: GLATIRAMER ACETATE
  2. AUBAGIO [Suspect]
     Active Substance: TERIFLUNOMIDE
     Indication: RELAPSING-REMITTING MULTIPLE SCLEROSIS
     Route: 048
  3. AUBAGIO [Suspect]
     Active Substance: TERIFLUNOMIDE
     Dosage: UNK

REACTIONS (7)
  - Product use issue [Unknown]
  - Headache [Unknown]
  - Multiple sclerosis [Unknown]
  - Secondary progressive multiple sclerosis [Unknown]
  - Hepatic enzyme increased [Recovering/Resolving]
  - Asthenia [Unknown]
  - Paraesthesia [Unknown]
